FAERS Safety Report 7707570-6 (Version None)
Quarter: 2011Q3

REPORT INFORMATION
  Report Type: 
  Country: None (occurrence: None)
  Receive Date: 20110824
  Receipt Date: 20110815
  Transmission Date: 20111222
  Serious: Yes (Other)
  Sender: FDA-Public Use
  Company Number: US-ASTRAZENECA-2011SE36940

PATIENT
  Age: 54 Year
  Sex: Female

DRUGS (2)
  1. NEXIUM [Suspect]
     Route: 048
  2. NEXIUM [Suspect]
     Dosage: TWO TIMES PER DAY INSTEAD OF ONCE
     Route: 048

REACTIONS (6)
  - DYSPEPSIA [None]
  - INSOMNIA [None]
  - OESOPHAGEAL RUPTURE [None]
  - DRUG DOSE OMISSION [None]
  - INCORRECT DOSE ADMINISTERED [None]
  - MALAISE [None]
